FAERS Safety Report 16002088 (Version 2)
Quarter: 2019Q1

REPORT INFORMATION
  Report Type: Spontaneous
  Country: IT (occurrence: IT)
  Receive Date: 20190225
  Receipt Date: 20190315
  Transmission Date: 20190418
  Serious: Yes (Other)
  Sender: FDA-Public Use
  Company Number: PHHY2019IT040265

PATIENT
  Age: 57 Year
  Sex: Female

DRUGS (9)
  1. INDOMETACIN [Suspect]
     Active Substance: INDOMETHACIN
     Indication: HEADACHE
     Dosage: 75 MG, CYCLIC
     Route: 048
  2. IBUPROFEN. [Suspect]
     Active Substance: IBUPROFEN
     Indication: HEADACHE
     Dosage: UNK
     Route: 048
  3. ESCITALOPRAM OXALATE. [Concomitant]
     Active Substance: ESCITALOPRAM OXALATE
     Indication: ANXIETY
     Dosage: 10 GTT, QD
     Route: 048
     Dates: start: 20180701
  4. RILAMIG [Concomitant]
     Indication: HEADACHE
     Route: 048
  5. REAPTAN [Concomitant]
     Active Substance: AMLODIPINE BESYLATE\PERINDOPRIL ARGININE
     Indication: HYPERTENSION
     Dosage: 15 MG, QD
     Route: 048
  6. OKI [Suspect]
     Active Substance: KETOPROFEN LYSINE
     Indication: HEADACHE
     Dosage: UNK
     Route: 048
  7. DELTACORTENE [Concomitant]
     Active Substance: PREDNISONE
     Indication: PRODUCT USED FOR UNKNOWN INDICATION
     Dosage: 50 MG, QD
     Route: 048
     Dates: start: 20180217, end: 20180301
  8. AULIN [Suspect]
     Active Substance: NIMESULIDE
     Indication: HEADACHE
     Dosage: UNK
     Route: 048
  9. SUMATRIPTAN. [Concomitant]
     Active Substance: SUMATRIPTAN
     Indication: HEADACHE
     Dosage: UNK
     Route: 048

REACTIONS (3)
  - Hypertransaminasaemia [Recovering/Resolving]
  - Headache [Recovering/Resolving]
  - Drug abuse [Recovering/Resolving]

NARRATIVE: CASE EVENT DATE: 20190123
